FAERS Safety Report 16498145 (Version 2)
Quarter: 2019Q3

REPORT INFORMATION
  Report Type: Spontaneous
  Country: BR (occurrence: BR)
  Receive Date: 20190628
  Receipt Date: 20190703
  Transmission Date: 20191004
  Serious: Yes (Disabling)
  Sender: FDA-Public Use
  Company Number: BR-ASCEND THERAPEUTICS-2069813

PATIENT
  Sex: Female

DRUGS (1)
  1. ESTROGEL [Suspect]
     Active Substance: ESTRADIOL
     Indication: MENOPAUSE
     Route: 062
     Dates: start: 201906

REACTIONS (6)
  - Product dose omission [None]
  - Drug ineffective [None]
  - Nail discolouration [Unknown]
  - Hot flush [Not Recovered/Not Resolved]
  - Skin discolouration [Unknown]
  - Foot fracture [Unknown]
